FAERS Safety Report 5370778-1 (Version None)
Quarter: 2007Q2

REPORT INFORMATION
  Report Type: 
  Country: None (occurrence: None)
  Receive Date: 20070626
  Receipt Date: 20070615
  Transmission Date: 20071010
  Serious: Yes (Hospitalization)
  Sender: FDA-Public Use
  Company Number: B0461622A

PATIENT
  Age: 42 Year
  Sex: Male
  Weight: 102 kg

DRUGS (6)
  1. AVANDAMET [Suspect]
     Route: 065
     Dates: start: 20070101, end: 20070101
  2. INSULINE [Concomitant]
     Route: 065
  3. PLAVIX [Concomitant]
     Route: 065
  4. OMEPRAZOLE [Concomitant]
     Route: 065
  5. ATORVASTATIN CALCIUM [Concomitant]
     Route: 065
  6. DETENSIEL [Concomitant]
     Route: 065

REACTIONS (3)
  - ARTHRALGIA [None]
  - MYOCARDIAL INFARCTION [None]
  - VASCULAR PURPURA [None]
